FAERS Safety Report 4267043-2 (Version None)
Quarter: 2004Q1

REPORT INFORMATION
  Report Type: 
  Country: None (occurrence: None)
  Receive Date: 20040107
  Receipt Date: 20031226
  Transmission Date: 20041129
  Serious: Yes (Other)
  Sender: FDA-Public Use
  Company Number: 2003127209

PATIENT
  Age: 55 Year
  Sex: Female
  Weight: 66.2252 kg

DRUGS (3)
  1. NEURONTIN [Suspect]
     Indication: PAIN
     Dosage: 3200 MG (DAILY), ORAL
     Route: 048
     Dates: start: 19990101
  2. CARISOPRODOL [Concomitant]
  3. DIAZEPAM [Concomitant]

REACTIONS (3)
  - BODY HEIGHT DECREASED [None]
  - LOSS OF CONSCIOUSNESS [None]
  - PAIN EXACERBATED [None]
